FAERS Safety Report 8536142-9 (Version None)
Quarter: 2012Q3

REPORT INFORMATION
  Report Type: 
  Country: None (occurrence: None)
  Receive Date: 20120725
  Receipt Date: 20120718
  Transmission Date: 20120928
  Serious: Yes (Other)
  Sender: FDA-Public Use
  Company Number: JP-PFIZER INC-2012173862

PATIENT
  Age: 88 Year
  Sex: Female

DRUGS (9)
  1. EPLERENONE [Concomitant]
     Route: 048
  2. ZETIA [Concomitant]
  3. ACTONEL [Concomitant]
  4. LASIX [Concomitant]
  5. ASPARA-CA [Concomitant]
  6. LYRICA [Suspect]
     Route: 048
  7. LORCAM [Concomitant]
  8. MUCOSTA [Concomitant]
  9. VITAMIN B12 [Concomitant]

REACTIONS (1)
  - RETINAL HAEMORRHAGE [None]
